FAERS Safety Report 9258304 (Version 3)
Quarter: 2015Q2

REPORT INFORMATION
  Report Type: Spontaneous
  Country: US (occurrence: US)
  Receive Date: 20130426
  Receipt Date: 20150522
  Transmission Date: 20150821
  Serious: Yes (Hospitalization, Other)
  Sender: FDA-Public Use
  Company Number: US-AMGEN-USASP2013029107

PATIENT
  Age: 69 Year
  Sex: Male
  Weight: 105.6 kg

DRUGS (1)
  1. ENBREL [Suspect]
     Active Substance: ETANERCEPT
     Indication: RHEUMATOID ARTHRITIS
     Dosage: 50 MG, QWK
     Route: 058
     Dates: start: 19991201

REACTIONS (18)
  - Ankylosing spondylitis [Not Recovered/Not Resolved]
  - Muscle tightness [Not Recovered/Not Resolved]
  - Joint dislocation [Recovered/Resolved]
  - Back injury [Not Recovered/Not Resolved]
  - Musculoskeletal stiffness [Not Recovered/Not Resolved]
  - Vasculitis [Unknown]
  - Hernia repair [Recovered/Resolved]
  - Colon cancer [Recovered/Resolved]
  - Muscle contracture [Not Recovered/Not Resolved]
  - Mobility decreased [Not Recovered/Not Resolved]
  - Escherichia infection [Recovered/Resolved]
  - Spinal compression fracture [Not Recovered/Not Resolved]
  - Spinal cord injury [Not Recovered/Not Resolved]
  - Wound dehiscence [Recovered/Resolved]
  - Road traffic accident [Unknown]
  - Liver disorder [Recovered/Resolved]
  - Arthritis [Not Recovered/Not Resolved]
  - Grip strength decreased [Not Recovered/Not Resolved]

NARRATIVE: CASE EVENT DATE: 19991201
